FAERS Safety Report 6718991-2 (Version None)
Quarter: 2010Q2

REPORT INFORMATION
  Report Type: 
  Country: None (occurrence: None)
  Receive Date: 20100507
  Receipt Date: 20100422
  Transmission Date: 20101027
  Serious: Yes (Other)
  Sender: FDA-Public Use
  Company Number: US-1181691

PATIENT
  Age: 39 Year
  Sex: Female

DRUGS (5)
  1. NEOMYCIN AND POLYMYXIN B SULF AND DEXAMETH OPHTHALMIC OINTMENT [Suspect]
     Dosage: QID OPHTHALMIC
     Route: 047
  2. PROPAMIDINE [Concomitant]
  3. CHLORHEXIDINE GLUCONATE [Concomitant]
  4. NATAMYCIN [Concomitant]
  5. ITRACONAZOLE [Concomitant]

REACTIONS (4)
  - DISEASE PROGRESSION [None]
  - DRUG DISPENSING ERROR [None]
  - MEDICATION ERROR [None]
  - ULCERATIVE KERATITIS [None]
